FAERS Safety Report 5727417-7 (Version None)
Quarter: 2008Q2

REPORT INFORMATION
  Report Type: 
  Country: None (occurrence: None)
  Receive Date: 20080505
  Receipt Date: 20080430
  Transmission Date: 20081010
  Serious: Yes (Other)
  Sender: FDA-Public Use
  Company Number: FR-AVENTIS-200811665FR

PATIENT
  Age: 90 Year
  Sex: Female

DRUGS (7)
  1. LOVENOX [Suspect]
     Route: 058
     Dates: start: 20080128, end: 20080317
  2. FUMAFER [Concomitant]
     Route: 048
     Dates: start: 20080131, end: 20080318
  3. TEMESTA                            /00273201/ [Concomitant]
  4. HYTACAND [Concomitant]
  5. PARACETAMOL [Concomitant]
  6. TRAMADOL HCL [Concomitant]
  7. CACIT D3 [Concomitant]

REACTIONS (3)
  - ANAEMIA [None]
  - LEUKOPENIA [None]
  - THROMBOCYTOPENIA [None]
